FAERS Safety Report 9964171 (Version 4)
Quarter: 2014Q3

REPORT INFORMATION
  Report Type: Report from Study
  Country: JP (occurrence: JP)
  Receive Date: 20140305
  Receipt Date: 20140822
  Transmission Date: 20150326
  Serious: Yes (Hospitalization, Other)
  Sender: FDA-Public Use
  Company Number: JP-MERCK-1308JPN007876

PATIENT
  Age: 37 Year
  Sex: Male
  Weight: 74 kg

DRUGS (19)
  1. SEROQUEL [Suspect]
     Active Substance: QUETIAPINE FUMARATE
     Indication: DEPRESSION
     Dosage: 50 MG, QD
     Route: 048
     Dates: start: 20111215, end: 20111218
  2. SEROQUEL [Suspect]
     Active Substance: QUETIAPINE FUMARATE
     Dosage: 50MG X 1 + 100MG X 1
     Route: 048
     Dates: start: 20120118, end: 20120119
  3. SEROQUEL [Suspect]
     Active Substance: QUETIAPINE FUMARATE
     Dosage: 100 MG, QD
     Route: 048
     Dates: start: 20111220, end: 20120117
  4. SEROQUEL [Suspect]
     Active Substance: QUETIAPINE FUMARATE
     Dosage: 400MG X1 + 50MG X2
     Route: 048
     Dates: start: 20130515
  5. SEROQUEL [Suspect]
     Active Substance: QUETIAPINE FUMARATE
     Dosage: 200MGX 1 +50MGX 2+50MGX 1
     Route: 048
     Dates: start: 20120405, end: 20120730
  6. LOXONIN [Concomitant]
     Active Substance: LOXOPROFEN SODIUM
     Indication: HEADACHE
     Dosage: 60 MG, ADMINISTERING AT THE TIME OF HEADACHE
     Route: 048
     Dates: start: 20090603
  7. REBAMIPIDE [Concomitant]
     Active Substance: REBAMIPIDE
     Indication: GASTRITIS
     Dosage: 100 MG, ADMINISTERING WHEN LOXONIN WAS USED
     Route: 048
     Dates: start: 20080603
  8. SEROQUEL [Suspect]
     Active Substance: QUETIAPINE FUMARATE
     Dosage: 200 MG, QD
     Route: 048
     Dates: start: 20120120, end: 20120122
  9. REFLEX [Suspect]
     Active Substance: MIRTAZAPINE
     Dosage: 30 MG, QD
     Route: 048
     Dates: start: 20120113, end: 20120115
  10. SEROQUEL [Suspect]
     Active Substance: QUETIAPINE FUMARATE
     Dosage: 200MG X 1 +50MG X 2
     Route: 048
     Dates: start: 20120201, end: 20120404
  11. SEROQUEL [Suspect]
     Active Substance: QUETIAPINE FUMARATE
     Dosage: 300MGX 1 +50MGX 2+50MGX 1
     Route: 048
     Dates: start: 20120731, end: 20130331
  12. ISENTRESS [Suspect]
     Active Substance: RALTEGRAVIR POTASSIUM
     Indication: HIV INFECTION
     Dosage: 800 MG, QD, DIVIDED DOSE FREQUENCY UNKNOWN
     Route: 048
     Dates: start: 20110820
  13. TRUVADA [Suspect]
     Active Substance: EMTRICITABINE\TENOFOVIR DISOPROXIL FUMARATE
     Indication: HIV INFECTION
     Dosage: 1 TABLET, DIVIDED DOSE FREQUENCY UNKNOWN
     Route: 048
     Dates: start: 20110820
  14. SEROQUEL [Suspect]
     Active Substance: QUETIAPINE FUMARATE
     Dosage: 300 MG, QD
     Route: 048
     Dates: start: 20120123, end: 20120124
  15. SEROQUEL [Suspect]
     Active Substance: QUETIAPINE FUMARATE
     Dosage: 300MG X 1 +50MG X 2
     Route: 048
     Dates: start: 20120130, end: 20120131
  16. REFLEX [Suspect]
     Active Substance: MIRTAZAPINE
     Indication: DEPRESSION
     Dosage: 15 MG, QD
     Route: 048
     Dates: start: 20120106, end: 20120112
  17. SEROQUEL [Suspect]
     Active Substance: QUETIAPINE FUMARATE
     Dosage: 50MGX 1 +100MGX 1
     Route: 048
     Dates: start: 20111219, end: 20111219
  18. SEROQUEL [Suspect]
     Active Substance: QUETIAPINE FUMARATE
     Dosage: 400MG X 1 +50MG X 2
     Route: 048
     Dates: start: 20120125, end: 20120129
  19. SEROQUEL [Suspect]
     Active Substance: QUETIAPINE FUMARATE
     Dosage: 300MG X1 + 50MG X 2
     Route: 048
     Dates: start: 20130401, end: 20130514

REACTIONS (6)
  - Upper respiratory tract inflammation [Recovered/Resolved]
  - Constipation [Recovering/Resolving]
  - Depression [Not Recovered/Not Resolved]
  - Hyperlipidaemia [Not Recovered/Not Resolved]
  - Convulsion [Recovering/Resolving]
  - Dyspepsia [Recovering/Resolving]

NARRATIVE: CASE EVENT DATE: 201108
